FAERS Safety Report 25716164 (Version 1)
Quarter: 2025Q3

REPORT INFORMATION
  Report Type: Spontaneous
  Country: US (occurrence: US)
  Receive Date: 20250822
  Receipt Date: 20250822
  Transmission Date: 20251021
  Serious: No
  Sender: GLAND PHARMA LTD
  Company Number: US-GLANDPHARMA-US-2025GLNSPO01616

PATIENT
  Age: 65 Year
  Sex: Female

DRUGS (3)
  1. BIMATOPROST [Suspect]
     Active Substance: BIMATOPROST
     Indication: Glaucoma
     Dates: start: 20250520
  2. VYZULTA [Concomitant]
     Active Substance: LATANOPROSTENE BUNOD
     Indication: Glaucoma
     Route: 065
  3. DORZOLAMIDE [Concomitant]
     Active Substance: DORZOLAMIDE
     Indication: Product used for unknown indication
     Dosage: 1 DROP TWICE A DAY

REACTIONS (8)
  - Eye swelling [Recovered/Resolved with Sequelae]
  - Wound secretion [Unknown]
  - Periorbital oedema [Unknown]
  - Eyelid margin crusting [Unknown]
  - Eye pruritus [Recovered/Resolved with Sequelae]
  - Eye pain [Recovered/Resolved]
  - Eye infection [Recovered/Resolved]
  - Drug ineffective [Unknown]

NARRATIVE: CASE EVENT DATE: 20250101
